FAERS Safety Report 6133147-2 (Version None)
Quarter: 2009Q1

REPORT INFORMATION
  Report Type: 
  Country: None (occurrence: None)
  Receive Date: 20090326
  Receipt Date: 20090317
  Transmission Date: 20090719
  Serious: Yes (Life-Threatening, Hospitalization)
  Sender: FDA-Public Use
  Company Number: FI-AMGEN-US339701

PATIENT
  Age: 13 Year
  Sex: Male
  Weight: 94 kg

DRUGS (1)
  1. ENBREL [Suspect]
     Indication: PSORIATIC ARTHROPATHY
     Route: 058
     Dates: end: 20090226

REACTIONS (2)
  - HYPERCAPNIA [None]
  - PNEUMONIA [None]
